FAERS Safety Report 16754239 (Version 1)
Quarter: 2019Q3

REPORT INFORMATION
  Report Type: Spontaneous
  Country: EG (occurrence: EG)
  Receive Date: 20190829
  Receipt Date: 20190829
  Transmission Date: 20191005
  Serious: Yes (Life-Threatening)
  Sender: FDA-Public Use
  Company Number: EG-MYLANLABS-2019M1081127

PATIENT
  Age: 4 Year
  Sex: Female
  Weight: 15 kg

DRUGS (4)
  1. PERFALGAN [Concomitant]
     Active Substance: ACETAMINOPHEN
     Indication: PYREXIA
     Dosage: UNK
     Route: 042
     Dates: start: 20180716, end: 20180724
  2. PANTOPRAZOLE [Concomitant]
     Active Substance: PANTOPRAZOLE
     Dosage: 1 MILLIGRAM/KILOGRAM
     Route: 042
     Dates: start: 20180716, end: 20180724
  3. MERONEM [Concomitant]
     Active Substance: MEROPENEM
     Indication: UPPER RESPIRATORY TRACT INFECTION
     Dosage: 20 MILLIGRAM/KILOGRAM, Q8H
     Route: 042
     Dates: start: 20180716, end: 20180724
  4. VANCOMYCIN MYLAN [Suspect]
     Active Substance: VANCOMYCIN
     Indication: UPPER RESPIRATORY TRACT INFECTION
     Dosage: 15 MILLIGRAM/KILOGRAM, Q8H
     Route: 041
     Dates: start: 20180816, end: 20180816

REACTIONS (2)
  - Red man syndrome [Recovered/Resolved]
  - Incorrect drug administration rate [Recovered/Resolved]

NARRATIVE: CASE EVENT DATE: 20180716
